FAERS Safety Report 5177238-1 (Version None)
Quarter: 2006Q4

REPORT INFORMATION
  Report Type: 
  Country: None (occurrence: None)
  Receive Date: 20061218
  Receipt Date: 20061212
  Transmission Date: 20070319
  Serious: Yes (Other)
  Sender: FDA-Public Use
  Company Number: US-GLAXOSMITHKLINE-A0631289A

PATIENT
  Sex: Female

DRUGS (1)
  1. CONTAC COLD + FLU MAXIMUM STRENGTH NON -DROWSY [Suspect]
     Indication: DRUG USE FOR UNKNOWN INDICATION
     Route: 048

REACTIONS (6)
  - DEPRESSED LEVEL OF CONSCIOUSNESS [None]
  - DRUG INEFFECTIVE [None]
  - FEELING ABNORMAL [None]
  - HYPOACUSIS [None]
  - ROAD TRAFFIC ACCIDENT [None]
  - SOMNOLENCE [None]
